FAERS Safety Report 7338964-9 (Version None)
Quarter: 2011Q1

REPORT INFORMATION
  Report Type: 
  Country: None (occurrence: None)
  Receive Date: 20110308
  Receipt Date: 20110223
  Transmission Date: 20110831
  Serious: Yes (Life-Threatening, Hospitalization)
  Sender: FDA-Public Use
  Company Number: FR-ELI_LILLY_AND_COMPANY-FR201102006745

PATIENT
  Age: 51 Year
  Sex: Female

DRUGS (5)
  1. DITROPAN [Concomitant]
     Route: 048
     Dates: start: 20020101
  2. FRACTAL [Concomitant]
  3. LAROXYL [Concomitant]
     Dates: start: 20020101
  4. LIORESAL [Concomitant]
     Dosage: UNK, UNK
     Route: 048
  5. CYMBALTA [Suspect]
     Dosage: UNK, UNKNOWN
     Route: 048
     Dates: start: 20090209

REACTIONS (5)
  - LOSS OF CONSCIOUSNESS [None]
  - VENTRICULAR TACHYCARDIA [None]
  - VENTRICULAR FIBRILLATION [None]
  - ATRIAL FLUTTER [None]
  - BUNDLE BRANCH BLOCK RIGHT [None]
